FAERS Safety Report 4738701-8 (Version None)
Quarter: 2005Q3

REPORT INFORMATION
  Report Type: 
  Country: None (occurrence: None)
  Receive Date: 20050809
  Receipt Date: 20050729
  Transmission Date: 20060218
  Serious: Yes (Death)
  Sender: FDA-Public Use
  Company Number: US-ABBOTT-05P-163-0307053-00

PATIENT
  Age: 34 Year
  Sex: Male

DRUGS (6)
  1. SODIUM VALPROATE (VPA) [Suspect]
     Indication: CONVULSION
     Dosage: NOT REPORTED
  2. SODIUM VALPROATE (VPA) [Suspect]
     Indication: ABNORMAL BEHAVIOUR
     Dosage: GRADUALLY INCREASED, NOT REPORTED
  3. SODIUM VALPROATE (VPA) [Suspect]
  4. SODIUM VALPROATE (VPA) [Suspect]
     Dosage: TAPERED, NOT REPORTED
  5. TOPIRAMATE [Concomitant]
     Indication: DRUG USE FOR UNKNOWN INDICATION
     Dosage: STEPWISE INCREASES, NOT REPORTED
  6. TOPIRAMATE [Concomitant]

REACTIONS (16)
  - AURA [None]
  - CARDIO-RESPIRATORY ARREST [None]
  - CELLULITIS [None]
  - CEREBRAL ATROPHY [None]
  - CONVULSION [None]
  - ENCEPHALOMALACIA [None]
  - HYPOKALAEMIA [None]
  - JOINT SWELLING [None]
  - LETHARGY [None]
  - OBESITY [None]
  - PULMONARY CONGESTION [None]
  - PULMONARY OEDEMA [None]
  - RIGHT VENTRICULAR FAILURE [None]
  - SCROTAL OEDEMA [None]
  - SLEEP APNOEA SYNDROME [None]
  - TACHYCARDIA [None]
